FAERS Safety Report 9280363 (Version 2)
Quarter: 2013Q2

REPORT INFORMATION
  Report Type: Spontaneous
  Country: US (occurrence: US)
  Receive Date: 20130509
  Receipt Date: 20130515
  Transmission Date: 20140414
  Serious: No
  Sender: FDA-Public Use
  Company Number: US-VERTEX PHARMACEUTICALS INC-2013-005846

PATIENT
  Age: 69 Year
  Sex: Female

DRUGS (7)
  1. INCIVEK [Suspect]
     Indication: HEPATITIS C
     Dosage: 750 MG, TID
     Route: 048
     Dates: start: 20130422
  2. RIBAVIRIN [Suspect]
     Indication: HEPATITIS C
     Dosage: 3 DF, BID
     Dates: start: 20130422
  3. PEGASYS [Suspect]
     Indication: HEPATITIS C
     Dosage: 180 ?G, QW
     Dates: start: 20130422
  4. AMLODIPINE [Concomitant]
     Dosage: 325 / 25 MG
  5. LYRICA [Concomitant]
     Dosage: 150 MG
  6. HYDROCHLOROTHIAZIDE [Concomitant]
     Dosage: 25 MG, UNK
  7. HUMALOG [Concomitant]

REACTIONS (3)
  - Chromaturia [Recovered/Resolved]
  - Injection site injury [Not Recovered/Not Resolved]
  - Injection site pruritus [Not Recovered/Not Resolved]
